FAERS Safety Report 4510934-5 (Version None)
Quarter: 2004Q4

REPORT INFORMATION
  Report Type: 
  Country: None (occurrence: None)
  Receive Date: 20041025
  Receipt Date: 20040128
  Transmission Date: 20050328
  Serious: Yes (Other)
  Sender: FDA-Public Use
  Company Number: NSADSS2002042555

PATIENT
  Age: 67 Year
  Sex: Female
  Weight: 83.0083 kg

DRUGS (21)
  1. REMICADE [Suspect]
     Indication: RHEUMATOID ARTHRITIS
     Dosage: 1 IN 1 AS NECESSARY, INTRAVENOUS DRIP
     Route: 041
     Dates: start: 20020314
  2. REMICADE [Suspect]
     Indication: RHEUMATOID ARTHRITIS
     Dosage: 1 IN 1 AS NECESSARY, INTRAVENOUS DRIP
     Route: 041
     Dates: start: 20020402
  3. REMICADE [Suspect]
  4. PREMARIN [Concomitant]
  5. FERROUS SULFATE (TABLETS) [Concomitant]
  6. ZESTRIL [Concomitant]
  7. DIMETAPP EXTENTABS (DIMETAPP) TABLETS [Concomitant]
  8. OSTEO BIFLEX (OSTEO BI-FLEX) TABLETS [Concomitant]
  9. TYLENOL (PARACETAMOL) TABLETS [Concomitant]
  10. VIOXX [Concomitant]
  11. ASPIRIN [Concomitant]
  12. LASIX [Concomitant]
  13. LISINOPRIL [Concomitant]
  14. TOPROL (METOPROLOL SUCCINATE) TABLETS [Concomitant]
  15. PREDNISONE [Concomitant]
  16. VITAMIN C (ASCORBIC ACID) [Concomitant]
  17. VITAMIN D [Concomitant]
  18. MULTIVITAMIN [Concomitant]
  19. PRED FORTE (PREDNISOLONE ACETATE) [Concomitant]
  20. CYCLOSPORIN EYE DROPS (CICLOSPORIN) [Concomitant]
  21. METHOTREXATE [Concomitant]

REACTIONS (1)
  - CARDIAC FAILURE CONGESTIVE [None]
